FAERS Safety Report 7445665-5 (Version None)
Quarter: 2011Q2

REPORT INFORMATION
  Report Type: 
  Country: None (occurrence: None)
  Receive Date: 20110429
  Receipt Date: 20110426
  Transmission Date: 20111010
  Serious: Yes (Death)
  Sender: FDA-Public Use
  Company Number: TN-SANOFI-AVENTIS-2011SA026060

PATIENT
  Age: 58 Year
  Sex: Male

DRUGS (6)
  1. CORVASAL [Concomitant]
     Route: 048
     Dates: end: 20110318
  2. ROSUVASTATIN CALCIUM [Concomitant]
     Route: 048
     Dates: end: 20110318
  3. PLAVIX [Suspect]
     Route: 048
     Dates: start: 20100928, end: 20110318
  4. PLAVIX [Suspect]
     Indication: MYOCARDIAL INFARCTION
     Route: 048
     Dates: start: 20100928, end: 20110318
  5. KARDEGIC [Concomitant]
     Route: 048
     Dates: start: 20110103, end: 20110318
  6. CAPTOPRIL [Concomitant]
     Route: 048
     Dates: start: 20110103, end: 20110318

REACTIONS (1)
  - LUNG NEOPLASM MALIGNANT [None]
